FAERS Safety Report 7274252-7 (Version None)
Quarter: 2011Q1

REPORT INFORMATION
  Report Type: 
  Country: None (occurrence: None)
  Receive Date: 20110204
  Receipt Date: 20110126
  Transmission Date: 20110831
  Serious: No
  Sender: FDA-Public Use
  Company Number: US-BIOGENIDEC-2011BI003708

PATIENT
  Sex: Female

DRUGS (3)
  1. AVONEX [Suspect]
     Route: 030
     Dates: start: 19990601
  2. REBIF [Concomitant]
     Indication: MULTIPLE SCLEROSIS
  3. AVONEX [Suspect]
     Indication: MULTIPLE SCLEROSIS
     Route: 030
     Dates: start: 20020501

REACTIONS (2)
  - ABASIA [None]
  - MULTIPLE SCLEROSIS [None]
